FAERS Safety Report 16010480 (Version 2)
Quarter: 2019Q2

REPORT INFORMATION
  Report Type: Other
  Country: DE (occurrence: DE)
  Receive Date: 20190227
  Receipt Date: 20190403
  Transmission Date: 20190711
  Serious: Yes (Death, Other)
  Sender: FDA-Public Use
  Company Number: DE-MACLEODS PHARMACEUTICALS US LTD-MAC2019020220

PATIENT

DRUGS (1)
  1. LEVOFLOXACIN TABLET [Suspect]
     Active Substance: LEVOFLOXACIN
     Indication: URINARY TRACT INFECTION
     Dosage: UNK, TABLET
     Route: 048
     Dates: start: 20181121, end: 20181126

REACTIONS (4)
  - Nausea [Unknown]
  - Tachypnoea [Fatal]
  - Circulatory collapse [Unknown]
  - Tachycardia [Fatal]

NARRATIVE: CASE EVENT DATE: 20181125
